FAERS Safety Report 4716054-9 (Version None)
Quarter: 2005Q3

REPORT INFORMATION
  Report Type: 
  Country: None (occurrence: None)
  Receive Date: 20050718
  Receipt Date: 20050706
  Transmission Date: 20060218
  Serious: Yes (Death, Hospitalization)
  Sender: FDA-Public Use
  Company Number: 200511842EU

PATIENT
  Age: 49 Year
  Sex: Male

DRUGS (3)
  1. SEGURIL [Suspect]
     Indication: CHRONIC HEPATITIS
     Route: 048
     Dates: start: 20000101, end: 20050526
  2. ALDACTONE [Suspect]
     Indication: CHRONIC HEPATITIS
     Route: 048
     Dates: start: 20000101, end: 20050526
  3. COMBIVIR [Concomitant]
     Indication: HIV INFECTION
     Route: 048
     Dates: start: 20000101

REACTIONS (3)
  - ENCEPHALOPATHY [None]
  - HYPONATRAEMIA [None]
  - LIVER DISORDER [None]
